FAERS Safety Report 6738548-7 (Version None)
Quarter: 2010Q2

REPORT INFORMATION
  Report Type: 
  Country: None (occurrence: None)
  Receive Date: 20100520
  Receipt Date: 20100505
  Transmission Date: 20101027
  Serious: Yes (Other)
  Sender: FDA-Public Use
  Company Number: 584796

PATIENT

DRUGS (9)
  1. ETOPOSIDE [Suspect]
     Indication: MEDULLOBLASTOMA
     Dosage: 250 MG/M2 MILLIGRAM(S)/SQ. METER
  2. CARBOPLATIN [Suspect]
     Indication: MEDULLOBLASTOMA
     Dosage: 500 MG/M2 MILLIGRAM(S)/SQ. METER
  3. CYCLOPHOSPHAMIDE [Suspect]
     Indication: MEDULLOBLASTOMA
     Dosage: 1500 MG/M2 MILLIGRAM(S)/SQ. METER
  4. THIOTEPA [Suspect]
     Indication: MEDULLOBLASTOMA
     Dosage: 300 MG/M2 MILLIGRAM(S) SQ. METER
  5. MELPHALAN HYDROCHLORIDE [Suspect]
     Indication: MEDULLOBLASTOMA
     Dosage: 60 MG/M2 MILLIGRAM(S)/SQ. METER
  6. ACYCLOVIR SODIUM [Concomitant]
  7. FLUCONAZOLE [Concomitant]
  8. PENTAMIDINE ISETHIONATE [Concomitant]
  9. GRANULOCYTE COLONY STIMULATING FACTOR [Concomitant]

REACTIONS (4)
  - HAEMATOTOXICITY [None]
  - MUCOSAL INFLAMMATION [None]
  - NEUTROPENIA [None]
  - PYREXIA [None]
